FAERS Safety Report 18006578 (Version 1)
Quarter: 2020Q3

REPORT INFORMATION
  Report Type: Spontaneous
  Country: CA (occurrence: CA)
  Receive Date: 20200710
  Receipt Date: 20200710
  Transmission Date: 20201103
  Serious: Yes (Hospitalization)
  Sender: FDA-Public Use
  Company Number: CA-PFIZER INC-2020264740

PATIENT
  Age: 50 Year
  Sex: Male

DRUGS (16)
  1. METHOTREXATE. [Concomitant]
     Active Substance: METHOTREXATE
     Indication: CROHN^S DISEASE
     Dosage: 25 MG, WEEKLY ON THURSDAYS
     Route: 058
     Dates: start: 201612
  2. TESTOSTERONE CIPIONATE [Suspect]
     Active Substance: TESTOSTERONE
  3. PREGABALIN. [Concomitant]
     Active Substance: PREGABALIN
     Dosage: 150 MG, 2X/DAY
     Route: 065
  4. ATIVAN [Concomitant]
     Active Substance: LORAZEPAM
     Dosage: 1 MG, 3X/DAY PRN
     Route: 065
  5. FOLIC ACID. [Concomitant]
     Active Substance: FOLIC ACID
     Dosage: 5 MG QD 2 DAYS AFTER METHOTREXATE
     Route: 065
  6. CITALOPRAM [Concomitant]
     Active Substance: CITALOPRAM HYDROBROMIDE
     Dosage: 30 MG, DAILY
     Route: 065
  7. INFLECTRA [Concomitant]
     Active Substance: INFLIXIMAB-DYYB
     Indication: CROHN^S DISEASE
     Dosage: 5 MG/KG 0, 2, 6 THEN EVERY 8 WEEKS
     Route: 042
     Dates: start: 20170922
  8. COVERSYL [PERINDOPRIL ERBUMINE] [Concomitant]
     Active Substance: PERINDOPRIL ERBUMINE
     Dosage: 2 MG, DAILY
     Route: 065
  9. NOVO?GESIC [Concomitant]
     Active Substance: ACETAMINOPHEN
     Dosage: 500 MG, 2 TABLETS 4X/DAY PRN
     Route: 048
  10. D?TABS [Concomitant]
     Active Substance: CHOLECALCIFEROL
     Dosage: 1000 IU, WEEKLY
     Route: 065
  11. ROSUVASTATIN. [Concomitant]
     Active Substance: ROSUVASTATIN
     Dosage: 20 MG HS (AT HOUR OF SLEEP)
     Route: 065
  12. QUETIAPINE. [Concomitant]
     Active Substance: QUETIAPINE
     Dosage: 100 MG 2 TABLETS HA
     Route: 048
  13. ACEBUTOLOL [Concomitant]
     Active Substance: ACEBUTOLOL
     Dosage: 150 MG, DAILY
     Route: 065
  14. DEXILANT [Concomitant]
     Active Substance: DEXLANSOPRAZOLE
     Dosage: 60 MG, 2X/DAY
     Route: 065
  15. AMLODIPINE [Concomitant]
     Active Substance: AMLODIPINE BESYLATE
     Dosage: 5 MG, DAILY
     Route: 065
  16. CALCIUM [Concomitant]
     Active Substance: CALCIUM
     Dosage: 500 MG, 2X/DAY
     Route: 065

REACTIONS (1)
  - Red blood cell count decreased [Unknown]
